FAERS Safety Report 12985572 (Version 1)
Quarter: 2016Q4

REPORT INFORMATION
  Report Type: Spontaneous
  Country: US (occurrence: US)
  Receive Date: 20161130
  Receipt Date: 20161130
  Transmission Date: 20170207
  Serious: No
  Sender: FDA-Public Use
  Company Number: US-ASTRAZENECA-2016SF21910

PATIENT
  Sex: Male

DRUGS (3)
  1. STEROIDS [Concomitant]
     Active Substance: UNSPECIFIED INGREDIENT
  2. ANTIBIOTIC CREAM [Concomitant]
     Indication: RASH
     Dosage: AS REQUIRED
  3. SYMBICORT [Suspect]
     Active Substance: BUDESONIDE\FORMOTEROL FUMARATE DIHYDRATE
     Indication: CHRONIC OBSTRUCTIVE PULMONARY DISEASE
     Dosage: 160/4.5 ONE PUFFS BID
     Route: 055
     Dates: start: 2016

REACTIONS (5)
  - Intentional device misuse [Unknown]
  - Drug dose omission [Unknown]
  - Infection [Unknown]
  - Off label use [Unknown]
  - Product packaging quantity issue [Unknown]
